FAERS Safety Report 20993780 (Version 1)
Quarter: 2022Q2

REPORT INFORMATION
  Report Type: Spontaneous
  Country: US (occurrence: None)
  Receive Date: 20220621
  Receipt Date: 20220621
  Transmission Date: 20220721
  Serious: No
  Sender: FDA-Public Use
  Company Number: None

PATIENT

DRUGS (2)
  1. LEUCOVORIN CALCIUM [Suspect]
     Active Substance: LEUCOVORIN CALCIUM
  2. LEUKERAN [Suspect]
     Active Substance: CHLORAMBUCIL

REACTIONS (5)
  - Transcription medication error [None]
  - Product dispensing error [None]
  - Wrong product administered [None]
  - Product name confusion [None]
  - Product name confusion [None]
